FAERS Safety Report 7746954-7 (Version None)
Quarter: 2011Q3

REPORT INFORMATION
  Report Type: 
  Country: None (occurrence: None)
  Receive Date: 20110913
  Receipt Date: 20110902
  Transmission Date: 20111222
  Serious: Yes (Death, Hospitalization, Other)
  Sender: FDA-Public Use
  Company Number: PHHY2011BR78555

PATIENT
  Sex: Female
  Weight: 40 kg

DRUGS (6)
  1. LASIX [Concomitant]
     Indication: HYPERTENSION
     Dosage: 1 DF, DAILY (40 MG)
  2. SPIROCTAN [Concomitant]
     Dosage: 1 DF, DAILY (25 MG)
  3. RASILEZ [Suspect]
     Indication: HYPERTENSION
     Dosage: 1 DF, DAILY (300 MG)
     Route: 048
     Dates: start: 20090101
  4. DIOVAN HCT [Suspect]
     Indication: HYPERTENSION
     Dosage: 1 DF, DAILY (160 MG VALS AND 25 MG HYDR)
     Route: 048
  5. APROVEL [Concomitant]
     Indication: HYPERTENSION
     Dosage: 0.5 DF, DAILY (300 MG)
     Route: 048
  6. DIGOXIN [Concomitant]
     Indication: CARDIAC DISORDER
     Dosage: 0.5 DF, DAILY
     Route: 048

REACTIONS (6)
  - CEREBROVASCULAR ACCIDENT [None]
  - HYPOPHAGIA [None]
  - PNEUMONIA [None]
  - BLOOD PRESSURE INADEQUATELY CONTROLLED [None]
  - MALAISE [None]
  - HYPOTENSION [None]
